FAERS Safety Report 6617603-6 (Version None)
Quarter: 2010Q1

REPORT INFORMATION
  Report Type: 
  Country: None (occurrence: None)
  Receive Date: 20100308
  Receipt Date: 20100301
  Transmission Date: 20100710
  Serious: Yes (Disabling)
  Sender: FDA-Public Use
  Company Number: TN-ASTRAZENECA-2010SE09057

PATIENT
  Age: 18 Year
  Sex: Female

DRUGS (2)
  1. XYLOCAINE W/ EPINEPHRINE [Suspect]
     Indication: ANAESTHESIA
     Route: 058
  2. BETADINE [Concomitant]
     Indication: INFECTION PROPHYLAXIS

REACTIONS (1)
  - BLEPHARITIS [None]
